FAERS Safety Report 7038422-5 (Version None)
Quarter: 2010Q4

REPORT INFORMATION
  Report Type: 
  Country: None (occurrence: None)
  Receive Date: 20101011
  Receipt Date: 20100527
  Transmission Date: 20110411
  Serious: No
  Sender: FDA-Public Use
  Company Number: US-PFIZER INC-2010049351

PATIENT
  Sex: Male
  Weight: 45.805 kg

DRUGS (5)
  1. NEURONTIN [Suspect]
     Indication: NEURALGIA
     Dosage: 300 MG, UNK
     Dates: start: 20090615
  2. NEURONTIN [Suspect]
     Indication: ANGIOPATHY
     Dosage: 200 MG, UNK
  3. NEURONTIN [Suspect]
     Dosage: 100 MG, DAILY AT BED TIME
     Route: 048
     Dates: end: 20100101
  4. HYDROCHLOROTHIAZIDE [Concomitant]
     Indication: HYPERTENSION
     Dosage: 12.5 MG, 1X/DAY
  5. NEBIVOLOL [Concomitant]
     Indication: HYPERTENSION
     Dosage: 10 MG, 1X/DAY

REACTIONS (5)
  - ANXIETY [None]
  - DIARRHOEA [None]
  - FEELING JITTERY [None]
  - HEADACHE [None]
  - NAUSEA [None]
